FAERS Safety Report 14167970 (Version 2)
Quarter: 2018Q2

REPORT INFORMATION
  Report Type: Spontaneous
  Country: US (occurrence: US)
  Receive Date: 20171107
  Receipt Date: 20180515
  Transmission Date: 20180711
  Serious: No
  Sender: FDA-Public Use
  Company Number: US-SA-2017SA151552

PATIENT
  Sex: Female

DRUGS (4)
  1. TOUJEO [Suspect]
     Active Substance: INSULIN GLARGINE
     Route: 051
  2. SOLOSTAR [Suspect]
     Active Substance: DEVICE
     Route: 065
  3. TOUJEO [Suspect]
     Active Substance: INSULIN GLARGINE
     Route: 051
  4. SOLOSTAR [Suspect]
     Active Substance: DEVICE
     Route: 065

REACTIONS (4)
  - Injection site vesicles [Unknown]
  - Glycosylated haemoglobin increased [Unknown]
  - Blood glucose increased [Unknown]
  - Injection site bruising [Unknown]
